FAERS Safety Report 23653462 (Version 7)
Quarter: 2024Q4

REPORT INFORMATION
  Report Type: Report from Study
  Country: CA (occurrence: CA)
  Receive Date: 20240320
  Receipt Date: 20241230
  Transmission Date: 20250115
  Serious: Yes (Hospitalization, Other)
  Sender: OTSUKA
  Company Number: CA-OTSUKA-2024_007173

PATIENT
  Sex: Male

DRUGS (2)
  1. ARIPIPRAZOLE [Suspect]
     Active Substance: ARIPIPRAZOLE
     Indication: Schizoaffective disorder
     Dosage: 400 MG, EVERY 4 WEEKS
     Route: 030
     Dates: start: 2020
  2. ARIPIPRAZOLE [Suspect]
     Active Substance: ARIPIPRAZOLE
     Dosage: 400 MG, EVERY 4 WEEKS
     Route: 030
     Dates: start: 20240312

REACTIONS (6)
  - COVID-19 [Recovering/Resolving]
  - Pulmonary embolism [Recovering/Resolving]
  - Diabetic ketoacidosis [Recovered/Resolved]
  - COVID-19 [Unknown]
  - Inappropriate schedule of product administration [Recovered/Resolved]
  - Product use in unapproved indication [Unknown]

NARRATIVE: CASE EVENT DATE: 20220101
